FAERS Safety Report 8885234 (Version 2)
Quarter: 2012Q4

REPORT INFORMATION
  Report Type: 
  Country: BR (occurrence: BR)
  Receive Date: 20121102
  Receipt Date: 20121114
  Transmission Date: 20130627
  Serious: Yes (Other)
  Sender: FDA-Public Use
  Company Number: BR-AMGEN-BRASP2012067994

PATIENT
  Age: 56 Year
  Sex: Female
  Weight: 44 kg

DRUGS (3)
  1. ENBREL [Suspect]
     Indication: RHEUMATOID ARTHRITIS
     Dosage: 50 mg, once weekly
     Route: 058
     Dates: start: 201201, end: 2012
  2. OMEPRAZOLE [Concomitant]
     Dosage: UNK UNK, UNK
  3. CELEBRA [Concomitant]
     Dosage: UNK

REACTIONS (11)
  - Strabismus [Unknown]
  - Visual impairment [Unknown]
  - Photophobia [Unknown]
  - Optic nerve disorder [Unknown]
  - Eye pain [Unknown]
  - Eyelid disorder [Unknown]
  - Exophthalmos [Unknown]
  - Dizziness [Unknown]
  - Inflammation [Unknown]
  - Swelling face [Unknown]
  - Sinusitis [Unknown]
